FAERS Safety Report 12285468 (Version 3)
Quarter: 2017Q3

REPORT INFORMATION
  Report Type: Spontaneous
  Country: US (occurrence: US)
  Receive Date: 20160420
  Receipt Date: 20170922
  Transmission Date: 20171127
  Serious: Yes (Other)
  Sender: FDA-Public Use
  Company Number: US-GLENMARK PHARMACEUTICALS INC, USA.-2016GMK022635

PATIENT

DRUGS (4)
  1. ACAMPROSATE CALCIUM. [Suspect]
     Active Substance: ACAMPROSATE CALCIUM
     Indication: ALCOHOLISM
     Dosage: 666 MG, TID
     Route: 048
     Dates: start: 20150127, end: 20150504
  2. LEXAPRO [Concomitant]
     Active Substance: ESCITALOPRAM OXALATE
     Indication: DEPRESSION
     Dosage: 20 MG, QD
     Route: 065
     Dates: start: 2008, end: 20160226
  3. ACAMPROSATE CALCIUM. [Suspect]
     Active Substance: ACAMPROSATE CALCIUM
     Dosage: 666 MG, BID
     Route: 048
     Dates: start: 20150504, end: 201601
  4. LAMICTAL [Concomitant]
     Active Substance: LAMOTRIGINE
     Indication: DEPRESSION
     Dosage: 150 MG, QID
     Route: 065
     Dates: start: 2008

REACTIONS (5)
  - Influenza [Unknown]
  - Pyrexia [Unknown]
  - Malaise [Unknown]
  - Colitis microscopic [Unknown]
  - Chills [Unknown]

NARRATIVE: CASE EVENT DATE: 201503
